FAERS Safety Report 9255678 (Version 1)
Quarter: 2013Q1

REPORT INFORMATION
  Report Type: Spontaneous
  Country: US (occurrence: None)
  Receive Date: 20121212
  Receipt Date: 20121212
  Transmission Date: 20140127
  Serious: No
  Sender: FDA-Public Use
  Company Number: 1210USA001177

PATIENT
  Sex: Female

DRUGS (3)
  1. RIBAVIRIN [Suspect]
     Indication: HEPATITIS C
     Dates: start: 20120831
  2. PEG-INTRON [Suspect]
     Indication: HEPATITIS C
     Dates: start: 20120831, end: 20120928
  3. VICTRELIS [Suspect]
     Indication: HEPATITIS C
     Dates: start: 20120928

REACTIONS (3)
  - Weight decreased [None]
  - Injection site erythema [None]
  - Decreased appetite [None]
